FAERS Safety Report 7530098-3 (Version None)
Quarter: 2011Q2

REPORT INFORMATION
  Report Type: 
  Country: None (occurrence: None)
  Receive Date: 20110607
  Receipt Date: 20110601
  Transmission Date: 20111010
  Serious: Yes (Life-Threatening)
  Sender: FDA-Public Use
  Company Number: PHHY2011US48769

PATIENT
  Sex: Female

DRUGS (2)
  1. STEROIDS NOS [Concomitant]
  2. RECLAST [Suspect]
     Route: 042

REACTIONS (1)
  - FEELING ABNORMAL [None]
